FAERS Safety Report 23063149 (Version 1)
Quarter: 2023Q4

REPORT INFORMATION
  Report Type: Spontaneous
  Country: US (occurrence: None)
  Receive Date: 20231012
  Receipt Date: 20231012
  Transmission Date: 20240109
  Serious: Yes (Other)
  Sender: FDA-Public Use
  Company Number: None

PATIENT
  Sex: Male

DRUGS (1)
  1. OMEPRAZOLE [Suspect]
     Active Substance: OMEPRAZOLE
     Indication: Gastrooesophageal reflux disease
     Dosage: FREQUENCY : DAILY;?
     Route: 048
     Dates: start: 20231008, end: 20231011

REACTIONS (4)
  - Flatulence [None]
  - Musculoskeletal chest pain [None]
  - Abdominal distension [None]
  - Discomfort [None]

NARRATIVE: CASE EVENT DATE: 20231008
